FAERS Safety Report 11168414 (Version 3)
Quarter: 2015Q3

REPORT INFORMATION
  Report Type: Spontaneous
  Country: US (occurrence: US)
  Receive Date: 20150605
  Receipt Date: 20150925
  Transmission Date: 20151125
  Serious: No
  Sender: FDA-Public Use
  Company Number: US-GLAXOSMITHKLINE-US2015GSK077243

PATIENT
  Sex: Female

DRUGS (2)
  1. TYKERB [Suspect]
     Active Substance: LAPATINIB DITOSYLATE
     Indication: NEOPLASM MALIGNANT
     Dosage: 1000 MG, QD
     Route: 065
     Dates: start: 20150502
  2. TYKERB [Suspect]
     Active Substance: LAPATINIB DITOSYLATE
     Indication: BREAST CANCER
     Dosage: 1000 MG, QD
     Route: 065
     Dates: start: 20150501

REACTIONS (6)
  - Diarrhoea [Unknown]
  - Skin irritation [Unknown]
  - Proctalgia [Unknown]
  - Drug dose omission [Unknown]
  - Headache [Unknown]
  - Product difficult to swallow [Unknown]
